FAERS Safety Report 5407041-6 (Version None)
Quarter: 2007Q3

REPORT INFORMATION
  Report Type: 
  Country: None (occurrence: None)
  Receive Date: 20070807
  Receipt Date: 20070801
  Transmission Date: 20080115
  Serious: Yes (Other)
  Sender: FDA-Public Use
  Company Number: JP-AVENTIS-200712060JP

PATIENT

DRUGS (2)
  1. FUROSEMIDE [Suspect]
     Indication: ASCITES
     Route: 042
  2. POTASSIUM CANRENOATE [Concomitant]

REACTIONS (2)
  - COMA HEPATIC [None]
  - RENAL DISORDER [None]
